FAERS Safety Report 12197723 (Version 1)
Quarter: 2016Q1

REPORT INFORMATION
  Report Type: Spontaneous
  Country: US (occurrence: US)
  Receive Date: 20160322
  Receipt Date: 20160322
  Transmission Date: 20160526
  Serious: Yes (Hospitalization)
  Sender: FDA-Public Use
  Company Number: US-BEH-2016060251

PATIENT
  Sex: Male
  Weight: 66 kg

DRUGS (11)
  1. IBUPROFEN. [Concomitant]
     Active Substance: IBUPROFEN
  2. POTASSIUM CHLORIDE. [Concomitant]
     Active Substance: POTASSIUM CHLORIDE
  3. DIPHENHYDRAMINE. [Concomitant]
     Active Substance: DIPHENHYDRAMINE
  4. EPIPEN [Concomitant]
     Active Substance: EPINEPHRINE
  5. HIZENTRA [Suspect]
     Active Substance: HUMAN IMMUNOGLOBULIN G
     Indication: IMMUNODEFICIENCY COMMON VARIABLE
     Dosage: STRENGTH OF DOSAGE FORM: 1GM 5ML, 4GM 20ML 10GM 50ML
     Route: 058
  6. HIZENTRA [Suspect]
     Active Substance: HUMAN IMMUNOGLOBULIN G
     Dosage: STRENGTH OF DOSAGE FORM: 1GM 5ML, 4GM 20ML 10GM 50ML
     Route: 058
  7. ALBUTEROL. [Concomitant]
     Active Substance: ALBUTEROL
  8. MIDODRINE [Concomitant]
     Active Substance: MIDODRINE
  9. HIZENTRA [Suspect]
     Active Substance: HUMAN IMMUNOGLOBULIN G
     Dosage: STRENGTH OF DOSAGE FORM: 1GM 5ML, 4GM 20ML 10GM 50ML
     Route: 058
  10. ARIXTRA [Concomitant]
     Active Substance: FONDAPARINUX SODIUM
  11. HYDROCODONE-APAP [Concomitant]
     Active Substance: ACETAMINOPHEN\HYDROCODONE

REACTIONS (2)
  - Limb operation [Recovering/Resolving]
  - Localised infection [Recovering/Resolving]
